FAERS Safety Report 19598626 (Version 1)
Quarter: 2021Q3

REPORT INFORMATION
  Report Type: Spontaneous
  Country: US (occurrence: US)
  Receive Date: 20210721
  Receipt Date: 20210721
  Transmission Date: 20211014
  Serious: No
  Sender: FDA-Public Use
  Company Number: None

PATIENT
  Age: 87 Year
  Sex: Female
  Weight: 64.41 kg

DRUGS (18)
  1. SUPER B?COMPLEX [Concomitant]
  2. POT CL MICRO [Concomitant]
  3. SULF [Concomitant]
  4. FOLIC ACID. [Concomitant]
     Active Substance: FOLIC ACID
  5. PRAVASTATIN SODIUM. [Concomitant]
     Active Substance: PRAVASTATIN SODIUM
  6. MAGNESIUM [Concomitant]
     Active Substance: MAGNESIUM
  7. ELIQUIS [Concomitant]
     Active Substance: APIXABAN
  8. LISINOPRIL. [Concomitant]
     Active Substance: LISINOPRIL
  9. DONEPEZIL HCL [Concomitant]
     Active Substance: DONEPEZIL HYDROCHLORIDE
  10. PRESERVISION AREDS 2 [Concomitant]
     Active Substance: MINERALS\VITAMINS
  11. AMOXICILLIN. [Suspect]
     Active Substance: AMOXICILLIN
     Indication: DENTAL CLEANING
     Dosage: ?          QUANTITY:4 DF DOSAGE FORM;?
     Route: 048
     Dates: start: 20200617
  12. CENTRUM SILVER [Concomitant]
     Active Substance: MINERALS\VITAMINS
  13. VITAMIN C [Concomitant]
     Active Substance: ASCORBIC ACID
  14. CALCIUM [Concomitant]
     Active Substance: CALCIUM
  15. VITAMIN D3 [Concomitant]
     Active Substance: CHOLECALCIFEROL
  16. COENZYME Q10 [Concomitant]
     Active Substance: DIETARY SUPPLEMENT\UBIDECARENONE
  17. BIOTIN [Concomitant]
     Active Substance: BIOTIN
  18. OSTEO BI?FLEX [Concomitant]
     Active Substance: CHONDROITIN SULFATE A\GLUCOSAMINE

REACTIONS (1)
  - Hip arthroplasty [None]

NARRATIVE: CASE EVENT DATE: 20200617
